FAERS Safety Report 7454977-0 (Version None)
Quarter: 2011Q2

REPORT INFORMATION
  Report Type: 
  Country: None (occurrence: None)
  Receive Date: 20110503
  Receipt Date: 20110425
  Transmission Date: 20111010
  Serious: Yes (Other)
  Sender: FDA-Public Use
  Company Number: US-BRISTOL-MYERS SQUIBB COMPANY-15694268

PATIENT
  Age: 68 Year
  Sex: Female
  Weight: 73 kg

DRUGS (12)
  1. ABILIFY [Suspect]
     Indication: HALLUCINATION, AUDITORY
     Dates: start: 20080101
  2. SIMVASTATIN [Concomitant]
  3. CALTRATE [Concomitant]
  4. CHERACOL [Concomitant]
  5. ROBITUSSIN AC [Concomitant]
  6. MULTI-VITAMIN [Concomitant]
  7. LOPRESSOR [Concomitant]
  8. BENICAR [Concomitant]
  9. BENZONATATE [Concomitant]
  10. REMERON [Concomitant]
  11. NORVASC [Concomitant]
  12. ADVAIR DISKUS 100/50 [Concomitant]

REACTIONS (2)
  - ELECTROCARDIOGRAM QT PROLONGED [None]
  - ELECTROCARDIOGRAM T WAVE ABNORMAL [None]
